FAERS Safety Report 8480211-9 (Version None)
Quarter: 2012Q2

REPORT INFORMATION
  Report Type: 
  Country: None (occurrence: None)
  Receive Date: 20120629
  Receipt Date: 20120622
  Transmission Date: 20120825
  Serious: Yes (Other)
  Sender: FDA-Public Use
  Company Number: US-ASTRAZENECA-2011SE45155

PATIENT
  Age: 55 Year
  Sex: Female

DRUGS (5)
  1. TAMOXIFEN CITRATE [Suspect]
     Route: 048
  2. LIPITOR [Concomitant]
  3. CRESTOR [Suspect]
     Route: 048
  4. ARIMIDEX [Suspect]
     Route: 048
  5. PROTONIX [Concomitant]

REACTIONS (17)
  - ACTIVITIES OF DAILY LIVING IMPAIRED [None]
  - ANXIETY [None]
  - FIBROMYALGIA [None]
  - LIVER INJURY [None]
  - DEPRESSION [None]
  - NERVE INJURY [None]
  - BLOOD CHOLESTEROL INCREASED [None]
  - MALAISE [None]
  - OSTEOARTHRITIS [None]
  - NEOPLASM MALIGNANT [None]
  - SCOLIOSIS [None]
  - SCIATIC NERVE INJURY [None]
  - INTERVERTEBRAL DISC DISORDER [None]
  - MEMORY IMPAIRMENT [None]
  - RENAL INJURY [None]
  - BACK DISORDER [None]
  - INTERVERTEBRAL DISC PROTRUSION [None]
